FAERS Safety Report 13501212 (Version 1)
Quarter: 2017Q2

REPORT INFORMATION
  Report Type: Spontaneous
  Country: US (occurrence: US)
  Receive Date: 20170501
  Receipt Date: 20170501
  Transmission Date: 20170830
  Serious: No
  Sender: FDA-Public Use
  Company Number: US-ROCHE-1881754

PATIENT
  Sex: Female
  Weight: 56.3 kg

DRUGS (1)
  1. ESBRIET [Suspect]
     Active Substance: PIRFENIDONE
     Indication: IDIOPATHIC PULMONARY FIBROSIS
     Dosage: 7 OR 8 PILLS PER DAY
     Route: 048
     Dates: start: 201411

REACTIONS (1)
  - Malaise [Recovered/Resolved]
